FAERS Safety Report 17063809 (Version 2)
Quarter: 2019Q4

REPORT INFORMATION
  Report Type: Report from Study
  Country: GB (occurrence: GB)
  Receive Date: 20191122
  Receipt Date: 20191129
  Transmission Date: 20200122
  Serious: Yes (Hospitalization)
  Sender: FDA-Public Use
  Company Number: NVSC2019GB039128

PATIENT
  Sex: Male

DRUGS (1)
  1. COSENTYX [Suspect]
     Active Substance: SECUKINUMAB
     Indication: PSORIASIS
     Dosage: 300 MG, QW (WEEK 0,1,2,3,4, THEN QMO)
     Route: 065
     Dates: start: 20191104

REACTIONS (6)
  - Arthralgia [Recovering/Resolving]
  - Rash [Unknown]
  - Psoriatic arthropathy [Recovering/Resolving]
  - Pruritus [Unknown]
  - Joint swelling [Recovering/Resolving]
  - Psoriasis [Unknown]
